FAERS Safety Report 7966254-X (Version None)
Quarter: 2011Q4

REPORT INFORMATION
  Report Type: 
  Country: None (occurrence: None)
  Receive Date: 20111208
  Receipt Date: 20111206
  Transmission Date: 20120403
  Serious: Yes (Other)
  Sender: FDA-Public Use
  Company Number: PHHY2011BE105611

PATIENT
  Sex: Male

DRUGS (3)
  1. QAB149 [Suspect]
     Indication: CHRONIC OBSTRUCTIVE PULMONARY DISEASE
     Dosage: 150 UG, QD
     Dates: start: 20110601, end: 20111101
  2. ESTIVAN [Concomitant]
     Indication: HYPERSENSITIVITY
     Dosage: 20 MG, QD
  3. SPIRIVA [Concomitant]
     Indication: CHRONIC OBSTRUCTIVE PULMONARY DISEASE
     Dosage: 18 UG, QD

REACTIONS (4)
  - ARRHYTHMIA [None]
  - HEART RATE INCREASED [None]
  - TACHYCARDIA [None]
  - VENTRICULAR EXTRASYSTOLES [None]
